FAERS Safety Report 10217292 (Version 1)
Quarter: 2014Q2

REPORT INFORMATION
  Report Type: Spontaneous
  Country: ES (occurrence: ES)
  Receive Date: 20140604
  Receipt Date: 20140604
  Transmission Date: 20141212
  Serious: Yes (Other)
  Sender: FDA-Public Use
  Company Number: ES-AMGEN INC.-ESPSP2014039816

PATIENT
  Age: 71 Year
  Sex: Female

DRUGS (2)
  1. PROLIA [Suspect]
     Indication: PRODUCT USED FOR UNKNOWN INDICATION
     Route: 065
  2. VITAMIN D                          /00107901/ [Concomitant]
     Route: 065

REACTIONS (8)
  - Spinal column injury [Unknown]
  - Dry mouth [Unknown]
  - Lip dry [Unknown]
  - Oedema mouth [Unknown]
  - Lip swelling [Unknown]
  - Oral pruritus [Unknown]
  - Fatigue [Unknown]
  - Dizziness [Unknown]
